FAERS Safety Report 9310623 (Version 4)
Quarter: 2013Q3

REPORT INFORMATION
  Report Type: Report from Study
  Country: US (occurrence: US)
  Receive Date: 20130527
  Receipt Date: 20130822
  Transmission Date: 20140515
  Serious: Yes (Hospitalization)
  Sender: FDA-Public Use
  Company Number: US-BRISTOL-MYERS SQUIBB COMPANY-18910406

PATIENT
  Age: 56 Year
  Sex: Female
  Weight: 71.6 kg

DRUGS (5)
  1. CETUXIMAB [Suspect]
     Indication: COLORECTAL CANCER
     Dosage: RECENT DOSE:21MAR13
     Route: 065
     Dates: start: 20120503, end: 20130321
  2. RAMUCIRUMAB [Suspect]
     Indication: COLORECTAL CANCER
     Dosage: LAST DOSE ON: 21MAR2013.
     Route: 065
     Dates: start: 20120503, end: 20130321
  3. CAMPTOSAR [Suspect]
     Indication: COLORECTAL CANCER
     Dosage: LAST DOSE ON: 21MAR2013.
     Route: 065
     Dates: start: 20120503, end: 20130321
  4. LOVENOX [Concomitant]
  5. DECADRON [Concomitant]

REACTIONS (2)
  - Anaemia [Recovered/Resolved]
  - Renal haematoma [Recovered/Resolved]
